FAERS Safety Report 7473385-X (Version None)
Quarter: 2011Q2

REPORT INFORMATION
  Report Type: 
  Country: None (occurrence: None)
  Receive Date: 20110511
  Receipt Date: 20110502
  Transmission Date: 20111010
  Serious: No
  Sender: FDA-Public Use
  Company Number: BR-ROCHE-772375

PATIENT
  Sex: Female
  Weight: 64 kg

DRUGS (10)
  1. ACTEMRA [Suspect]
     Route: 050
     Dates: start: 20101101, end: 20101101
  2. ACTEMRA [Suspect]
     Route: 050
     Dates: start: 20110201, end: 20110201
  3. ACTEMRA [Suspect]
     Indication: RHEUMATOID ARTHRITIS
     Dosage: ROUTE: ENDOVENOUS
     Route: 050
     Dates: start: 20100801, end: 20100801
  4. ACTEMRA [Suspect]
     Route: 050
     Dates: start: 20110101, end: 20110101
  5. CALCIUM [Concomitant]
     Dosage: DOSE, FORM AND FREQUENCY UNKNOWN
  6. ACTEMRA [Suspect]
     Route: 050
     Dates: start: 20100901, end: 20100901
  7. ACTEMRA [Suspect]
     Route: 050
     Dates: start: 20101001, end: 20101001
  8. ACTEMRA [Suspect]
     Route: 050
     Dates: start: 20110301, end: 20110301
  9. VITAMIN C [Concomitant]
     Dosage: DOSE, FORM AND FREQUENCY UNKNOWN
  10. NAPROXEN [Concomitant]
     Dosage: FREQUENCY AND FORM UNKNOWN

REACTIONS (3)
  - INSOMNIA [None]
  - FALL [None]
  - AMNESIA [None]
